FAERS Safety Report 6539909-1 (Version None)
Quarter: 2010Q1

REPORT INFORMATION
  Report Type: 
  Country: None (occurrence: None)
  Receive Date: 20100111
  Receipt Date: 20100104
  Transmission Date: 20100710
  Serious: Yes (Other)
  Sender: FDA-Public Use
  Company Number: TPA2010A00026

PATIENT
  Age: 78 Year
  Sex: Female
  Weight: 63.5036 kg

DRUGS (1)
  1. KAPIDEX [Suspect]
     Indication: GASTROOESOPHAGEAL REFLUX DISEASE
     Dosage: 60 MG, 1 IN 1 D, PER ORAL
     Route: 048
     Dates: start: 20091201, end: 20091201

REACTIONS (5)
  - DYSPHAGIA [None]
  - OESOPHAGEAL OEDEMA [None]
  - PHARYNGEAL OEDEMA [None]
  - SWOLLEN TONGUE [None]
  - VISUAL IMPAIRMENT [None]
